FAERS Safety Report 25041480 (Version 1)
Quarter: 2025Q1

REPORT INFORMATION
  Report Type: Spontaneous
  Country: JP (occurrence: JP)
  Receive Date: 20250305
  Receipt Date: 20250305
  Transmission Date: 20250408
  Serious: Yes (Hospitalization)
  Sender: DERMAVANT SCIENCES
  Company Number: JP-JT-EVA202500833Dermavant Sciences Inc.

PATIENT
  Age: 49 Year
  Sex: Male

DRUGS (1)
  1. VTAMA [Suspect]
     Active Substance: TAPINAROF
     Indication: Psoriasis
     Route: 003
     Dates: start: 202501, end: 202502

REACTIONS (1)
  - Application site cellulitis [Unknown]

NARRATIVE: CASE EVENT DATE: 20250201
